FAERS Safety Report 4390091-9 (Version None)
Quarter: 2004Q3

REPORT INFORMATION
  Report Type: 
  Country: None (occurrence: None)
  Receive Date: 20040706
  Receipt Date: 20040623
  Transmission Date: 20050211
  Serious: Yes (Other)
  Sender: FDA-Public Use
  Company Number: AU-AMGEN-US081288

PATIENT
  Sex: Male
  Weight: 84 kg

DRUGS (6)
  1. DARBEPOETIN ALFA [Suspect]
     Indication: ANAEMIA OF MALIGNANT DISEASE
     Route: 058
     Dates: start: 20040604, end: 20040604
  2. CYCLOPHOSPHAMIDE [Concomitant]
     Dates: start: 20040610, end: 20040617
  3. PAMIDRONATE DISODIUM [Concomitant]
     Dates: start: 20030813
  4. BETALOC [Concomitant]
  5. CARTIA [Concomitant]
     Dates: start: 20001001
  6. CHLORPROMAZINE [Concomitant]
     Dates: start: 20031029

REACTIONS (3)
  - BIPOLAR DISORDER [None]
  - PARANOIA [None]
  - REFUSAL OF TREATMENT BY PATIENT [None]
